FAERS Safety Report 15879665 (Version 2)
Quarter: 2019Q2

REPORT INFORMATION
  Report Type: Spontaneous
  Country: FR (occurrence: FR)
  Receive Date: 20190128
  Receipt Date: 20190425
  Transmission Date: 20190711
  Serious: Yes (Death)
  Sender: FDA-Public Use
  Company Number: FR-BAYER-2019-015997

PATIENT
  Age: 71 Year
  Sex: Female
  Weight: 50 kg

DRUGS (13)
  1. LAMALINE (ACETAMINOPHEN\CAFFEINE\OPIUM) [Concomitant]
     Active Substance: ACETAMINOPHEN\CAFFEINE\OPIUM
  2. HYDROCHLOROTHIAZIDE. [Concomitant]
     Active Substance: HYDROCHLOROTHIAZIDE
  3. IRBESARTAN. [Concomitant]
     Active Substance: IRBESARTAN
  4. RILMENIDINE [Concomitant]
     Active Substance: RILMENIDINE
  5. KETOPROFENE [KETOPROFEN] [Concomitant]
     Active Substance: KETOPROFEN
     Dosage: UNK
  6. COAPROVEL [Concomitant]
     Active Substance: HYDROCHLOROTHIAZIDE\IRBESARTAN
  7. NEXAVAR [Suspect]
     Active Substance: SORAFENIB
     Indication: HEPATOCELLULAR CARCINOMA
     Dosage: 800 MG, UNK
     Route: 048
     Dates: start: 20181210, end: 20181221
  8. OPIUM + BELLADONNA [Concomitant]
  9. DOLIPRANE [Concomitant]
     Active Substance: ACETAMINOPHEN
  10. HYPERIUM [Concomitant]
     Active Substance: RILMENIDINE PHOSPHATE
  11. CAFEINE [Concomitant]
     Active Substance: CAFFEINE
  12. PARACETAMOL [Concomitant]
     Active Substance: ACETAMINOPHEN
  13. GLUCOPHAGE [Concomitant]
     Active Substance: METFORMIN HYDROCHLORIDE

REACTIONS (4)
  - Stevens-Johnson syndrome [Fatal]
  - Staphylococcal bacteraemia [Fatal]
  - Toxic skin eruption [Fatal]
  - Staphylococcal sepsis [Fatal]

NARRATIVE: CASE EVENT DATE: 20181218
